FAERS Safety Report 17675589 (Version 1)
Quarter: 2020Q2

REPORT INFORMATION
  Report Type: Spontaneous
  Country: DE (occurrence: DE)
  Receive Date: 20200416
  Receipt Date: 20200416
  Transmission Date: 20200714
  Serious: Yes (Hospitalization)
  Sender: FDA-Public Use
  Company Number: DE-HETERO-HET2020DE00412

PATIENT
  Age: 81 Year
  Sex: Male

DRUGS (15)
  1. FENTANYL                           /00174602/ [Suspect]
     Active Substance: FENTANYL
     Dosage: 0.0125 MG/H, NACH PLAN, PFLASTER TRANSDERMAL
     Route: 062
  2. SITAGLIPTIN METFORMIN [Concomitant]
     Active Substance: METFORMIN HYDROCHLORIDE\SITAGLIPTIN PHOSPHATE
     Indication: PRODUCT USED FOR UNKNOWN INDICATION
     Dosage: 50 MG 1-0-0-0
     Route: 065
  3. EISEN                              /00023501/ [Concomitant]
     Indication: PRODUCT USED FOR UNKNOWN INDICATION
     Dosage: 100 MG, 1-0-1-0, KAPSELN
     Route: 065
  4. METAMIZOL                          /06276701/ [Concomitant]
     Active Substance: METAMIZOLE
     Indication: PRODUCT USED FOR UNKNOWN INDICATION
     Dosage: 500 MG 1-1-1-1
     Route: 065
  5. FLUVASTATIN [Concomitant]
     Active Substance: FLUVASTATIN SODIUM
     Indication: PRODUCT USED FOR UNKNOWN INDICATION
     Dosage: 40 MG, 0-0-1-0, KAPSEL
     Route: 065
  6. LEVETIRACETAM. [Suspect]
     Active Substance: LEVETIRACETAM
     Indication: PRODUCT USED FOR UNKNOWN INDICATION
     Dosage: 500 MG1-0-1-0
     Route: 065
  7. PREGABALIN. [Suspect]
     Active Substance: PREGABALIN
     Indication: PRODUCT USED FOR UNKNOWN INDICATION
     Dosage: 75 MG, 1-0-1-0, KAPSELN
     Route: 065
  8. FENTANYL                           /00174602/ [Suspect]
     Active Substance: FENTANYL
     Indication: PRODUCT USED FOR UNKNOWN INDICATION
     Dosage: 0.025 MG/H, NACH PLAN, PFLASTER TRANSDERMAL
     Route: 062
  9. LAXOBERAL BISA [Concomitant]
     Indication: PRODUCT USED FOR UNKNOWN INDICATION
     Dosage: 7.5 MG/ML, 0-0-12-0, TROPFEN
     Route: 065
  10. METFORMIN [Concomitant]
     Active Substance: METFORMIN HYDROCHLORIDE
     Indication: PRODUCT USED FOR UNKNOWN INDICATION
     Dosage: 850 MG, 0.5-0-0.5-0, TABLETTEN
     Route: 065
  11. AMLODIPIN                          /00972401/ [Concomitant]
     Active Substance: AMLODIPINE BESYLATE
     Indication: PRODUCT USED FOR UNKNOWN INDICATION
     Dosage: 5 MG, 0-1-0-0, TABLETTEN
     Route: 065
  12. TORASEMID AAA-PHARMA [Concomitant]
     Active Substance: TORSEMIDE
     Indication: PRODUCT USED FOR UNKNOWN INDICATION
     Dosage: 10 MG, 1-0-0-0, TABLETTEN
     Route: 065
  13. RAMIPRIL ACCORD [Concomitant]
     Active Substance: RAMIPRIL
     Indication: PRODUCT USED FOR UNKNOWN INDICATION
     Dosage: 5 MG 1-0-1-0
     Route: 065
  14. BALDRIAN PASSIONSBLUME [Concomitant]
     Indication: PRODUCT USED FOR UNKNOWN INDICATION
     Dosage: 200 MG, 0-0-0-1, TABLETTEN
     Route: 065
  15. PANTOPRAZOL                        /01263201/ [Concomitant]
     Active Substance: PANTOPRAZOLE
     Dosage: 40 MG, 1-0-0-0
     Route: 065

REACTIONS (4)
  - Thirst [Unknown]
  - Dehydration [Unknown]
  - General physical health deterioration [Unknown]
  - Fall [Unknown]
